FAERS Safety Report 5901231-1 (Version None)
Quarter: 2008Q3

REPORT INFORMATION
  Report Type: 
  Country: None (occurrence: None)
  Receive Date: 20080929
  Receipt Date: 20080625
  Transmission Date: 20090109
  Serious: No
  Sender: FDA-Public Use
  Company Number: US-BRISTOL-MYERS SQUIBB COMPANY-14241020

PATIENT
  Age: 62 Year
  Sex: Female
  Weight: 80 kg

DRUGS (14)
  1. ORENCIA [Suspect]
     Indication: RHEUMATOID ARTHRITIS
     Dosage: LOADING DOSES 2/1,2/15 AND 2/29 AND ONE INFUSION PER MONTH THEREAFTER.ON 24-JUN GIVEN OVER ONE HOUR.
     Route: 042
     Dates: start: 20080201
  2. ZOFRAN [Concomitant]
  3. NEXIUM [Concomitant]
  4. MAXZIDE [Concomitant]
  5. LOPRESSOR [Concomitant]
  6. PREDNISONE [Concomitant]
  7. LEVOTHYROXINE SODIUM [Concomitant]
  8. POTASSIUM CHLORIDE [Concomitant]
  9. VICODIN [Concomitant]
  10. AMBIEN [Concomitant]
  11. XANAX [Concomitant]
  12. ASTELIN [Concomitant]
  13. NASACORT [Concomitant]
  14. ALLEGRA [Concomitant]

REACTIONS (4)
  - HERPES SIMPLEX [None]
  - HERPES ZOSTER [None]
  - HYPERTENSION [None]
  - MIGRAINE [None]
